FAERS Safety Report 7742936 (Version 28)
Quarter: 2014Q2

REPORT INFORMATION
  Report Type: Spontaneous
  Country: US (occurrence: US)
  Receive Date: 20101229
  Receipt Date: 20140515
  Transmission Date: 20141212
  Serious: Yes (Death, Other)
  Sender: FDA-Public Use
  Company Number: PHEH2010US03876

PATIENT
  Age: 70 Year
  Sex: Male

DRUGS (62)
  1. AREDIA [Suspect]
     Indication: METASTASES TO PROSTATE
     Dosage: 90 MG, QMO
     Route: 042
  2. ZOMETA [Suspect]
     Indication: METASTASES TO BONE
     Dosage: 4 MG, QMO
     Route: 041
     Dates: start: 20000530, end: 20080528
  3. ZOMETA [Suspect]
     Indication: METASTASES TO PROSTATE
     Dosage: UNK UKN, UNK
     Dates: end: 201005
  4. ZYVOX [Concomitant]
     Dosage: UNK UKN, UNK
  5. PROMETHAZINE [Concomitant]
     Dosage: UNK UKN, UNK
  6. OXYCODONE [Concomitant]
     Dosage: UNK UKN, UNK
  7. CLONAZEPAM [Concomitant]
     Dosage: UNK UKN, UNK
  8. TEMAZEPAM [Concomitant]
     Dosage: UNK UKN, UNK
  9. ANCEF [Concomitant]
     Dosage: UNK UKN, UNK
  10. KANTREX [Concomitant]
     Dosage: UNK UKN, UNK
  11. BACITRACIN [Concomitant]
     Dosage: UNK UKN, UNK
  12. NEOSPORIN [Concomitant]
     Dosage: UNK UKN, UNK
  13. GENTAMYCIN [Concomitant]
     Dosage: UNK UKN, UNK
  14. VANCOMYCIN [Concomitant]
     Dosage: UNK UKN, UNK
  15. HEPARIN [Concomitant]
     Dosage: UNK UKN, UNK
  16. INDIGO CARMINE [Concomitant]
     Dosage: UNK UKN, UNK
  17. MARCAINE [Concomitant]
     Dosage: UNK UKN, UNK
  18. METHADONE [Concomitant]
     Dosage: UNK UKN, UNK
  19. KETOCONAZOLE [Concomitant]
     Dosage: UNK UKN, UNK
  20. HYDROCORTISONE [Concomitant]
     Dosage: UNK UKN, UNK
  21. ZOCOR [Concomitant]
     Dosage: UNK UKN, UNK
  22. PRILOSEC [Concomitant]
     Dosage: UNK UKN, UNK
  23. NEXIUM [Concomitant]
     Dosage: UNK UKN, UNK
  24. PEPCID [Concomitant]
     Dosage: UNK UKN, UNK
  25. ALLEGRA [Concomitant]
     Dosage: UNK UKN, UNK
  26. LEXAPRO [Concomitant]
     Dosage: UNK UKN, UNK
  27. FLUNISOLIDE [Concomitant]
     Dosage: UNK UKN, UNK
  28. EFFEXOR [Concomitant]
     Dosage: UNK UKN, UNK
  29. ANTIVERT [Concomitant]
     Dosage: UNK UKN, UNK
  30. CHEMOTHERAPEUTICS [Concomitant]
     Dosage: UNK UKN, UNK
  31. MISOPROSTOL [Concomitant]
     Dosage: UNK UKN, UNK
  32. HYTRIN [Concomitant]
     Dosage: UNK UKN, UNK
  33. INDOCIN [Concomitant]
     Dosage: UNK UKN, UNK
  34. SOMA [Concomitant]
     Dosage: UNK UKN, UNK
  35. METHADONE HYDROCHLORIDE [Concomitant]
     Dosage: UNK UKN, UNK
  36. CARVEDILOL [Concomitant]
     Dosage: UNK UKN, UNK
  37. SENNA [Concomitant]
     Dosage: UNK UKN, UNK
  38. WARFARIN SODIUM [Concomitant]
     Dosage: UNK UKN, UNK
  39. CYTOTEC [Concomitant]
     Dosage: UNK UKN, UNK
  40. CYMBALTA [Concomitant]
     Dosage: UNK UKN, UNK
  41. COUMADINE [Concomitant]
     Dosage: UNK UKN, UNK
  42. PERCOCET [Concomitant]
     Dosage: UNK UKN, UNK
  43. MORPHINE [Concomitant]
     Dosage: UNK UKN, UNK
  44. VERSED [Concomitant]
     Dosage: UNK UKN, UNK
  45. ZOFRAN [Concomitant]
     Dosage: UNK UKN, UNK
  46. HYZAAR [Concomitant]
     Dosage: UNK UKN, UNK
  47. SENOKOT [Concomitant]
     Dosage: UNK UKN, UNK
  48. REGELAN [Concomitant]
     Dosage: UNK UKN, UNK
  49. ESTRADIOL [Concomitant]
     Dosage: 0.8 MG, UNK
  50. CELEBREX [Concomitant]
     Dosage: 100 MG, UNK
  51. PROSCAR [Concomitant]
     Dosage: 5 MG, UNK
  52. PROZAC [Concomitant]
     Dosage: 20 MG, UNK
  53. MOTRIN [Concomitant]
     Dosage: 800 MG, UNK
  54. VIVELLE [Concomitant]
     Dosage: UNK UKN, UNK
  55. LORAZEPAM [Concomitant]
     Dosage: 0.5 MG, UNK
  56. VYTORIN [Concomitant]
     Dosage: UNK UKN, UNK
  57. LUPRON [Concomitant]
     Dosage: UNK UKN, UNK
     Route: 065
  58. TAXOTERE [Concomitant]
     Dosage: UNK UKN, UNK
  59. AVODART [Concomitant]
     Dosage: UNK UKN, UNK
  60. DOXYCYCLINE [Concomitant]
     Dosage: UNK UKN, UNK
  61. CASODEX [Concomitant]
     Dosage: UNK UKN, UNK
  62. DOSTINEX [Concomitant]
     Dosage: UNK UKN, UNK

REACTIONS (158)
  - Death [Fatal]
  - Osteonecrosis of jaw [Unknown]
  - Pain [Unknown]
  - Anxiety [Unknown]
  - Anhedonia [Unknown]
  - Oral infection [Unknown]
  - Disability [Unknown]
  - Deformity [Unknown]
  - Osteomyelitis [Unknown]
  - Swelling [Unknown]
  - Erythema [Unknown]
  - Exposed bone in jaw [Unknown]
  - Pain in jaw [Unknown]
  - Toothache [Recovered/Resolved]
  - Cellulitis [Unknown]
  - Purulent discharge [Unknown]
  - Loose tooth [Unknown]
  - Hypertension [Unknown]
  - Cerebrovascular accident [Unknown]
  - Spinal cord compression [Unknown]
  - Pathological fracture [Unknown]
  - Neuropathy peripheral [Unknown]
  - Neuritis [Unknown]
  - Diverticulum [Unknown]
  - Tobacco abuse [Unknown]
  - Sleep apnoea syndrome [Unknown]
  - Hip fracture [Unknown]
  - Mitral valve incompetence [Unknown]
  - Ventricular hypertrophy [Unknown]
  - Haemorrhagic anaemia [Unknown]
  - Tricuspid valve incompetence [Unknown]
  - Amnesia [Unknown]
  - Otitis media [Unknown]
  - Dizziness [Unknown]
  - Rotator cuff syndrome [Unknown]
  - Cataract [Unknown]
  - Confusional state [Unknown]
  - Dental caries [Unknown]
  - Bone loss [Unknown]
  - Back pain [Unknown]
  - Arthralgia [Unknown]
  - Dyspnoea [Unknown]
  - Pain in extremity [Unknown]
  - Hyperlipidaemia [Unknown]
  - Agitation [Unknown]
  - Urinary retention [Unknown]
  - Cervical radiculopathy [Unknown]
  - Lumbar radiculopathy [Unknown]
  - Brachial plexopathy [Unknown]
  - Lumbosacral plexus lesion [Unknown]
  - Toxic encephalopathy [Unknown]
  - Metabolic encephalopathy [Unknown]
  - Atrial fibrillation [Unknown]
  - Pneumonia [Recovered/Resolved]
  - Phimosis [Unknown]
  - Gastrooesophageal reflux disease [Unknown]
  - Aortic arteriosclerosis [Unknown]
  - Glucose tolerance impaired [Unknown]
  - Insomnia [Unknown]
  - Affective disorder [Unknown]
  - Hypoaesthesia [Unknown]
  - Paraesthesia [Unknown]
  - Urobilinogen urine increased [Unknown]
  - Nitrite urine present [Unknown]
  - Contusion [Unknown]
  - Prostate cancer metastatic [Unknown]
  - Thrombocytopenia [Unknown]
  - Urinary tract infection [Unknown]
  - Pulmonary hypertension [Unknown]
  - Pulmonary mass [Unknown]
  - Transient ischaemic attack [Unknown]
  - Cerebral infarction [Unknown]
  - Cerebral artery occlusion [Unknown]
  - Dehydration [Unknown]
  - Dysphagia [Unknown]
  - Burns third degree [Unknown]
  - Depression [Unknown]
  - Bone pain [Unknown]
  - Femur fracture [Unknown]
  - Decubitus ulcer [Unknown]
  - Balance disorder [Unknown]
  - Disorientation [Unknown]
  - Spinal osteoarthritis [Unknown]
  - Convulsion [Unknown]
  - Bone fistula [Unknown]
  - Myofascial pain syndrome [Unknown]
  - Mitral valve sclerosis [Unknown]
  - Aortic valve sclerosis [Unknown]
  - Left ventricular dysfunction [Unknown]
  - Left atrial dilatation [Unknown]
  - Hip deformity [Unknown]
  - Wound [Unknown]
  - Chest pain [Unknown]
  - Cardiomegaly [Unknown]
  - Extrapyramidal disorder [Unknown]
  - Sepsis [Unknown]
  - Osteonecrosis [Unknown]
  - Osteitis [Unknown]
  - Rectal haemorrhage [Unknown]
  - Abdominal pain [Unknown]
  - Micturition urgency [Unknown]
  - Gynaecomastia [Unknown]
  - Haematochezia [Unknown]
  - Microcytosis [Unknown]
  - Neutropenia [Unknown]
  - Post laminectomy syndrome [Unknown]
  - Apathy [Unknown]
  - Arthritis [Unknown]
  - Kyphosis [Unknown]
  - Nocturia [Unknown]
  - Nail disorder [Unknown]
  - Nasal congestion [Unknown]
  - Upper respiratory tract infection [Unknown]
  - Neuralgia [Unknown]
  - Gingival inflammation [Unknown]
  - Gingival abscess [Unknown]
  - Gingival bleeding [Unknown]
  - Myelopathy [Unknown]
  - Nervousness [Unknown]
  - Hypoaesthesia oral [Unknown]
  - Restless legs syndrome [Unknown]
  - Tooth fracture [Unknown]
  - Blood cholesterol increased [Unknown]
  - Pyrexia [Unknown]
  - Fatigue [Unknown]
  - Headache [Unknown]
  - Snoring [Unknown]
  - Musculoskeletal stiffness [Unknown]
  - Joint stiffness [Unknown]
  - Nausea [Unknown]
  - Alopecia [Unknown]
  - Cough [Unknown]
  - Musculoskeletal pain [Unknown]
  - Myalgia [Unknown]
  - Muscular weakness [Unknown]
  - Dysphonia [Unknown]
  - Arthropathy [Unknown]
  - Salivary gland pain [Unknown]
  - Claustrophobia [Unknown]
  - Loss of consciousness [Unknown]
  - Malaise [Unknown]
  - Febrile neutropenia [Unknown]
  - Odynophagia [Unknown]
  - Suicidal ideation [Unknown]
  - Aggression [Unknown]
  - Electrolyte imbalance [Unknown]
  - Lung infiltration [Unknown]
  - Chromaturia [Unknown]
  - Coronary artery disease [Unknown]
  - Memory impairment [Unknown]
  - Cardiac septal hypertrophy [Unknown]
  - Ejection fraction decreased [Unknown]
  - Aortic stenosis [Unknown]
  - Bone fragmentation [Unknown]
  - Visual impairment [Unknown]
  - Osteoarthritis [Unknown]
  - Osteosclerosis [Unknown]
  - Muscle spasms [Unknown]
